FAERS Safety Report 25736757 (Version 1)
Quarter: 2025Q3

REPORT INFORMATION
  Report Type: Spontaneous
  Country: US (occurrence: US)
  Receive Date: 20250828
  Receipt Date: 20250828
  Transmission Date: 20251020
  Serious: No
  Sender: GALDERMA
  Company Number: US-GALDERMA-US2025014314

PATIENT

DRUGS (1)
  1. NEMLUVIO [Suspect]
     Active Substance: NEMOLIZUMAB-ILTO
     Indication: Neurodermatitis
     Route: 058

REACTIONS (7)
  - Neurodermatitis [Recovering/Resolving]
  - Skin ulcer [Recovering/Resolving]
  - Dry skin [Recovering/Resolving]
  - Pruritus [Recovering/Resolving]
  - Skin haemorrhage [Recovering/Resolving]
  - Skin weeping [Recovering/Resolving]
  - Skin discolouration [Unknown]
